FAERS Safety Report 9144037 (Version 1)
Quarter: 2013Q1

REPORT INFORMATION
  Report Type: Spontaneous
  Country: US (occurrence: US)
  Receive Date: 20130306
  Receipt Date: 20130306
  Transmission Date: 20140127
  Serious: Yes (Other)
  Sender: FDA-Public Use
  Company Number: US-WATSON-2013-03083

PATIENT
  Age: 60 Year
  Sex: Male

DRUGS (11)
  1. METFORMIN HYDROCHLORIDE (WATSON LABORATORIES) [Suspect]
     Indication: BLOOD GLUCOSE INCREASED
     Dosage: 500 MG, 1 IN 1 D
     Route: 048
  2. ARMOUR THYROID [Suspect]
     Indication: HYPOTHYROIDISM
     Dosage: (30 MG, 1 IN 1 D)
     Route: 048
     Dates: start: 20130106, end: 20130111
  3. ARMOUR THYROID [Suspect]
     Indication: AUTOIMMUNE THYROIDITIS
     Dosage: 60 MG, 1 IN 1 D
     Route: 048
     Dates: start: 20121130, end: 20130105
  4. ARMOUR THYROID [Suspect]
     Indication: HYPOTHYROIDISM
     Dosage: (30 MG, 1 IN 1 D)
     Route: 048
     Dates: start: 20130124
  5. ARMOUR THYROID [Suspect]
     Indication: AUTOIMMUNE THYROIDITIS
     Dosage: 45MG, 1 IN 1 D
     Route: 048
     Dates: start: 20130112, end: 20130123
  6. VITAMIN C                          /00008001/ [Concomitant]
     Indication: PRODUCT USED FOR UNKNOWN INDICATION
     Dosage: 500 MG, 1 IN 1 D
     Route: 048
  7. VITAMIN D /00107901/ [Concomitant]
     Indication: PRODUCT USED FOR UNKNOWN INDICATION
     Dosage: 200 IU, 1 IN 1 D
     Route: 048
  8. CALCIUM [Concomitant]
     Indication: PRODUCT USED FOR UNKNOWN INDICATION
     Dosage: 500 MG, 1 IN 1 D
     Route: 048
  9. VITAMIN K                          /00032401/ [Concomitant]
     Indication: PRODUCT USED FOR UNKNOWN INDICATION
     Dosage: 40MCG, 1 IN 1 D
     Route: 048
  10. CITRACAL                           /00751520/ [Concomitant]
     Indication: PRODUCT USED FOR UNKNOWN INDICATION
     Dosage: UNK
     Route: 065
  11. ASPIRIN [Concomitant]
     Indication: PRODUCT USED FOR UNKNOWN INDICATION
     Dosage: 81 MG, 1 IN 1 D
     Route: 048

REACTIONS (6)
  - Body temperature increased [Recovered/Resolved]
  - Insomnia [Not Recovered/Not Resolved]
  - Temperature intolerance [Not Recovered/Not Resolved]
  - Blood thyroid stimulating hormone decreased [Unknown]
  - Respiratory tract infection [Recovered/Resolved]
  - Night sweats [Recovered/Resolved]
